FAERS Safety Report 7788859-1 (Version None)
Quarter: 2011Q3

REPORT INFORMATION
  Report Type: 
  Country: None (occurrence: None)
  Receive Date: 20110928
  Receipt Date: 20110909
  Transmission Date: 20111222
  Serious: No
  Sender: FDA-Public Use
  Company Number: 2011-01288

PATIENT
  Age: 22 Year
  Sex: Female
  Weight: 58.0604 kg

DRUGS (4)
  1. ZICAM COLD REMEDY GEL SWABS [Suspect]
     Dosage: 1 DOSE/1 USE,1 DAY/1 USE
  2. LOVAZA [Concomitant]
  3. ZICAM COLD REMEDY ORAL MIST [Suspect]
     Dosage: 1 DOSE, 1 DAY/1 DOSE
     Dates: start: 20110909, end: 20110909
  4. FLAX OIL [Concomitant]

REACTIONS (2)
  - HYPOSMIA [None]
  - DYSGEUSIA [None]
